FAERS Safety Report 9287069 (Version 1)
Quarter: 2013Q2

REPORT INFORMATION
  Report Type: Spontaneous
  Country: US (occurrence: None)
  Receive Date: 20130508
  Receipt Date: 20130508
  Transmission Date: 20140414
  Serious: Yes (Hospitalization)
  Sender: FDA-Public Use
  Company Number: UTC-032277

PATIENT
  Age: 49 Year
  Sex: Female
  Weight: 81.36 kg

DRUGS (3)
  1. REMODULIN [Suspect]
     Indication: COR PULMONALE CHRONIC
     Dosage: (0.015 UG/KG, 1 IN 1 MIN)
     Route: 058
     Dates: start: 20121105
  2. COUMADIN [Concomitant]
  3. LETAIRIS [Concomitant]

REACTIONS (1)
  - Infusion site infection [None]
